FAERS Safety Report 10880685 (Version 1)
Quarter: 2015Q1

REPORT INFORMATION
  Report Type: Spontaneous
  Country: US (occurrence: None)
  Receive Date: 20150225
  Receipt Date: 20150225
  Transmission Date: 20150721
  Serious: No
  Sender: FDA-Public Use
  Company Number: None

PATIENT
  Age: 78 Year
  Sex: Male

DRUGS (1)
  1. XTANDI [Suspect]
     Active Substance: ENZALUTAMIDE
     Dosage: STRENGTH 40
     Dates: start: 20150122

REACTIONS (2)
  - Hot flush [None]
  - Oedema [None]

NARRATIVE: CASE EVENT DATE: 20150210
